FAERS Safety Report 23976422 (Version 1)
Quarter: 2024Q2

REPORT INFORMATION
  Report Type: Spontaneous
  Country: US (occurrence: None)
  Receive Date: 20240613
  Receipt Date: 20240613
  Transmission Date: 20240716
  Serious: Yes (Other)
  Sender: FDA-Public Use
  Company Number: None

PATIENT
  Age: 51 Year
  Sex: Female

DRUGS (1)
  1. DUPIXENT [Suspect]
     Active Substance: DUPILUMAB
     Indication: Dermatitis atopic
     Dosage: 600 MG ONCE SUBCUTANEOUS
     Route: 058
     Dates: start: 20240611

REACTIONS (6)
  - Fatigue [None]
  - Wheezing [None]
  - Chest discomfort [None]
  - Diarrhoea [None]
  - Vomiting [None]
  - Hypoaesthesia [None]

NARRATIVE: CASE EVENT DATE: 20240611
